FAERS Safety Report 8735497 (Version 4)
Quarter: 2012Q4

REPORT INFORMATION
  Report Type: 
  Country: JP (occurrence: JP)
  Receive Date: 20120822
  Receipt Date: 20121231
  Transmission Date: 20130627
  Serious: Yes (Life-Threatening, Hospitalization)
  Sender: FDA-Public Use
  Company Number: PHHY2012JP071604

PATIENT
  Age: 39 Year
  Sex: Female

DRUGS (7)
  1. TEGRETOL [Suspect]
     Indication: DEPRESSION
     Route: 048
  2. TEGRETOL [Suspect]
     Dosage: 30 g
     Route: 048
  3. NEUOMIL [Suspect]
     Indication: DEPRESSION
     Route: 048
  4. NEUOMIL [Suspect]
     Dosage: 2.1 g
     Route: 048
  5. MEDETAX [Concomitant]
  6. BENZALIN [Concomitant]
  7. LUVOX [Concomitant]

REACTIONS (11)
  - Grand mal convulsion [Recovering/Resolving]
  - Ventricular fibrillation [Recovering/Resolving]
  - Cardiac arrest [Recovering/Resolving]
  - Altered state of consciousness [Recovering/Resolving]
  - Intentional overdose [Recovered/Resolved]
  - Muscle rigidity [Recovering/Resolving]
  - Salivary hypersecretion [Recovering/Resolving]
  - Injury [Recovering/Resolving]
  - Restlessness [Recovering/Resolving]
  - Suicidal ideation [Recovering/Resolving]
  - Suicide attempt [None]
